FAERS Safety Report 18316536 (Version 1)
Quarter: 2020Q3

REPORT INFORMATION
  Report Type: Spontaneous
  Country: ES (occurrence: ES)
  Receive Date: 20200927
  Receipt Date: 20200927
  Transmission Date: 20201103
  Serious: Yes (Hospitalization)
  Sender: FDA-Public Use
  Company Number: ES-JNJFOC-20200931625

PATIENT
  Age: 83 Year
  Sex: Female
  Weight: 76 kg

DRUGS (2)
  1. FORTASEC [Suspect]
     Active Substance: LOPERAMIDE HYDROCHLORIDE
     Indication: LIQUID PRODUCT PHYSICAL ISSUE
     Dosage: UNKNOWN
     Route: 048
     Dates: end: 20171028
  2. OSIMERTINIB. [Suspect]
     Active Substance: OSIMERTINIB
     Indication: ADENOCARCINOMA
     Dosage: 40 MG
     Route: 048
     Dates: start: 20170830

REACTIONS (3)
  - Vomiting [Unknown]
  - Intestinal obstruction [Unknown]
  - Abdominal pain [Unknown]

NARRATIVE: CASE EVENT DATE: 20171028
